FAERS Safety Report 8789983 (Version 3)
Quarter: 2012Q4

REPORT INFORMATION
  Report Type: Report from Study
  Country: GB (occurrence: GB)
  Receive Date: 20120917
  Receipt Date: 20121026
  Transmission Date: 20130627
  Serious: Yes (Hospitalization)
  Sender: FDA-Public Use
  Company Number: GB-NOVOPROD-359563

PATIENT
  Age: 43 Year
  Sex: Female
  Weight: 118.5 kg

DRUGS (2)
  1. LIRAGLUTIDE FLEXPEN [Suspect]
     Indication: OBESITY
     Dosage: 0.6 mg, qd
     Route: 058
     Dates: start: 20110721
  2. LIRAGLUTIDE FLEXPEN [Suspect]
     Indication: TYPE 2 DIABETES MELLITUS
     Dosage: 3 mg, qd
     Route: 058
     Dates: start: 20110817, end: 20120808

REACTIONS (2)
  - Gastrooesophageal reflux disease [Recovered/Resolved]
  - Gastrooesophageal reflux disease [Recovered/Resolved]
